FAERS Safety Report 21289740 (Version 13)
Quarter: 2024Q4

REPORT INFORMATION
  Report Type: Report from Study
  Country: US (occurrence: US)
  Receive Date: 20220902
  Receipt Date: 20241202
  Transmission Date: 20250114
  Serious: Yes (Hospitalization, Other)
  Sender: TAKEDA
  Company Number: US-TAKEDA-2022TUS060868

PATIENT
  Age: 69 Year
  Sex: Female

DRUGS (6)
  1. TEDUGLUTIDE [Suspect]
     Active Substance: TEDUGLUTIDE
     Indication: Short-bowel syndrome
     Dosage: 2.9 MILLIGRAM, QD
     Dates: start: 20170410, end: 20230712
  2. TEDUGLUTIDE [Suspect]
     Active Substance: TEDUGLUTIDE
     Dosage: 2.9 MILLIGRAM, QD
     Dates: start: 20220629, end: 20220907
  3. TEDUGLUTIDE [Suspect]
     Active Substance: TEDUGLUTIDE
     Dosage: 0.29 MILLILITER, QD
     Dates: end: 20221211
  4. TEDUGLUTIDE [Suspect]
     Active Substance: TEDUGLUTIDE
     Dosage: 2.9 MILLIGRAM, QD
     Dates: end: 20230821
  5. TEDUGLUTIDE [Suspect]
     Active Substance: TEDUGLUTIDE
     Dosage: 2.9 MILLIGRAM, QD
  6. TEDUGLUTIDE [Suspect]
     Active Substance: TEDUGLUTIDE
     Dosage: 2.9 MILLIGRAM, QD

REACTIONS (14)
  - Myocardial necrosis marker increased [Recovered/Resolved]
  - Vascular device infection [Not Recovered/Not Resolved]
  - Fungal endocarditis [Unknown]
  - Pyrexia [Recovered/Resolved]
  - Hypophosphataemia [Recovered/Resolved]
  - Full blood count abnormal [Recovered/Resolved]
  - Cardiac output increased [Recovering/Resolving]
  - Infection [Recovering/Resolving]
  - Fungal infection [Not Recovered/Not Resolved]
  - Influenza [Recovered/Resolved]
  - Hypervolaemia [Recovered/Resolved]
  - Back pain [Not Recovered/Not Resolved]
  - Cardiac failure [Recovered/Resolved]
  - Syringe issue [Not Recovered/Not Resolved]

NARRATIVE: CASE EVENT DATE: 20220828
